FAERS Safety Report 7475706-0 (Version None)
Quarter: 2011Q2

REPORT INFORMATION
  Report Type: 
  Country: None (occurrence: None)
  Receive Date: 20110512
  Receipt Date: 20110505
  Transmission Date: 20111010
  Serious: Yes (Other)
  Sender: FDA-Public Use
  Company Number: BR-ELI_LILLY_AND_COMPANY-BR201104004288

PATIENT
  Sex: Male

DRUGS (8)
  1. HUMULIN N [Suspect]
     Dosage: 40 IU, EACH MORNING
     Route: 065
  2. HUMULIN N [Suspect]
     Dosage: 30 IU, QD
     Route: 065
  3. HUMULIN N [Suspect]
     Indication: TYPE 2 DIABETES MELLITUS
     Dosage: 40 IU, EACH MORNING
     Route: 065
  4. CLOPIDOGREL [Concomitant]
     Indication: PLATELET AGGREGATION INHIBITION
     Dosage: 75 MG, QD
     Route: 065
  5. SINVASTATINA [Concomitant]
     Indication: BLOOD CHOLESTEROL
     Dosage: 40 MG, QD
     Route: 065
  6. HUMULIN N [Suspect]
     Dosage: 30 IU, QD
  7. METFORMIN HCL [Concomitant]
     Indication: DIABETES MELLITUS
     Dosage: 850 MG, BID
     Route: 065
  8. ASPIRIN [Concomitant]
     Indication: PLATELET AGGREGATION INHIBITION
     Dosage: 100 MG, BID
     Route: 065

REACTIONS (7)
  - DRUG INEFFECTIVE [None]
  - BLOOD GLUCOSE INCREASED [None]
  - HEADACHE [None]
  - FEELING ABNORMAL [None]
  - HYPERTENSION [None]
  - NERVOUSNESS [None]
  - STRESS [None]
